FAERS Safety Report 25708133 (Version 2)
Quarter: 2025Q3

REPORT INFORMATION
  Report Type: Spontaneous
  Country: JP (occurrence: JP)
  Receive Date: 20250820
  Receipt Date: 20250930
  Transmission Date: 20251020
  Serious: Yes (Death, Life-Threatening, Other)
  Sender: MERCK SHARP & DOHME LLC
  Company Number: JP-009507513-2320518

PATIENT
  Age: 59 Year
  Sex: Female

DRUGS (1)
  1. KEYTRUDA [Suspect]
     Active Substance: PEMBROLIZUMAB
     Indication: Hypopharyngeal cancer
     Dates: start: 20230111, end: 20231122

REACTIONS (12)
  - Diabetic ketoacidosis [Fatal]
  - Therapy partial responder [Unknown]
  - Nausea [Recovered/Resolved]
  - Decreased appetite [Recovered/Resolved]
  - Pleural effusion [Unknown]
  - Cardiac failure acute [Recovered/Resolved]
  - Immune-mediated myocarditis [Recovered/Resolved]
  - COVID-19 [Recovered/Resolved]
  - Renal impairment [Not Recovered/Not Resolved]
  - Cardiovascular disorder [Unknown]
  - Skin ulcer [Unknown]
  - Coronary artery disease [Unknown]

NARRATIVE: CASE EVENT DATE: 20230101
